FAERS Safety Report 13663395 (Version 2)
Quarter: 2017Q2

REPORT INFORMATION
  Report Type: Spontaneous
  Country: CA (occurrence: CA)
  Receive Date: 20170619
  Receipt Date: 20170619
  Transmission Date: 20170830
  Serious: Yes (Other)
  Sender: FDA-Public Use
  Company Number: CA-JNJFOC-20170610767

PATIENT
  Age: 9 Decade
  Sex: Male

DRUGS (1)
  1. TYLENOL EXTRA STRENGTH EZTAB [Suspect]
     Active Substance: ACETAMINOPHEN
     Indication: MYALGIA
     Dosage: 1 TABLET ONCE
     Route: 048

REACTIONS (3)
  - Choking [Recovered/Resolved]
  - Product size issue [Unknown]
  - Cough [Recovered/Resolved]
